FAERS Safety Report 7789494-1 (Version None)
Quarter: 2011Q3

REPORT INFORMATION
  Report Type: 
  Country: None (occurrence: None)
  Receive Date: 20110930
  Receipt Date: 20110921
  Transmission Date: 20111222
  Serious: Yes (Disabling)
  Sender: FDA-Public Use
  Company Number: US-JNJFOC-20110909960

PATIENT
  Sex: Female
  Weight: 121.56 kg

DRUGS (6)
  1. ANTI-ANXIETY MEDICATION (NOS) [Concomitant]
     Indication: ANXIETY
     Route: 048
     Dates: start: 20030101
  2. ASPIRIN [Concomitant]
     Route: 048
     Dates: start: 19880101
  3. METHOTREXATE [Concomitant]
     Indication: ARTHRITIS
     Route: 048
     Dates: start: 20110101
  4. CALCIUM WITH VITAMIN D [Concomitant]
     Route: 048
     Dates: start: 20110401
  5. REMICADE [Suspect]
     Indication: ARTHRITIS
     Route: 042
     Dates: start: 20110901
  6. VITAMIN D [Concomitant]
     Dosage: DOSE 50000
     Route: 048
     Dates: start: 20110401

REACTIONS (9)
  - IMPAIRED WORK ABILITY [None]
  - INFUSION RELATED REACTION [None]
  - ABASIA [None]
  - BLOOD PRESSURE INCREASED [None]
  - MIGRAINE [None]
  - ARTHRALGIA [None]
  - FEELING COLD [None]
  - PAIN [None]
  - FEELING HOT [None]
